FAERS Safety Report 5215533-8 (Version None)
Quarter: 2007Q1

REPORT INFORMATION
  Report Type: 
  Country: None (occurrence: None)
  Receive Date: 20070123
  Receipt Date: 20070111
  Transmission Date: 20070707
  Serious: Yes (Other)
  Sender: FDA-Public Use
  Company Number: PHBS2007BR01014

PATIENT
  Age: 39 Year
  Sex: Female
  Weight: 48 kg

DRUGS (3)
  1. TRILEPTAL [Suspect]
     Dosage: 300 MG, BID
     Route: 048
  2. TRILEPTAL [Suspect]
     Dosage: 450 MG/DAY
     Route: 048
  3. CITALOPRAM HYDROBROMIDE [Concomitant]

REACTIONS (4)
  - CONVULSION [None]
  - DIZZINESS [None]
  - HEADACHE [None]
  - SOMNOLENCE [None]
